FAERS Safety Report 19607853 (Version 1)
Quarter: 2021Q3

REPORT INFORMATION
  Report Type: Spontaneous
  Country: US (occurrence: US)
  Receive Date: 20210726
  Receipt Date: 20210726
  Transmission Date: 20211014
  Serious: Yes (Other)
  Sender: FDA-Public Use
  Company Number: US-ROCHE-2871735

PATIENT
  Weight: 59.47 kg

DRUGS (3)
  1. ELIQUIS [Suspect]
     Active Substance: APIXABAN
     Indication: ATRIAL FIBRILLATION
     Route: 048
     Dates: start: 2019
  2. ERIVEDGE [Suspect]
     Active Substance: VISMODEGIB
     Indication: BASAL CELL CARCINOMA
     Dosage: YES
     Route: 048
     Dates: start: 202101
  3. BIOTIN [Concomitant]
     Active Substance: BIOTIN
     Route: 048
     Dates: start: 202104

REACTIONS (12)
  - Fibula fracture [Not Recovered/Not Resolved]
  - Taste disorder [Not Recovered/Not Resolved]
  - Fall [Unknown]
  - Vitamin D increased [Not Recovered/Not Resolved]
  - Blood calcium increased [Recovered/Resolved]
  - Muscle spasms [Recovered/Resolved]
  - Decreased appetite [Not Recovered/Not Resolved]
  - Fracture [Not Recovered/Not Resolved]
  - Bone development abnormal [Not Recovered/Not Resolved]
  - Walking aid user [Recovered/Resolved]
  - Fracture delayed union [Unknown]
  - Alopecia [Not Recovered/Not Resolved]

NARRATIVE: CASE EVENT DATE: 2021
